FAERS Safety Report 8520882-1 (Version None)
Quarter: 2012Q3

REPORT INFORMATION
  Report Type: 
  Country: None (occurrence: None)
  Receive Date: 20120712
  Receipt Date: 20120712
  Transmission Date: 20120928
  Serious: Yes (Other)
  Sender: FDA-Public Use
  Company Number: None

PATIENT
  Age: 80 Year
  Sex: Male

DRUGS (1)
  1. LEVOTHYROXINE SODIUM [Suspect]
     Indication: HYPOTHYROIDISM
     Dosage: 125MG ONCE DAILY PO
     Route: 048

REACTIONS (4)
  - NAIL DISORDER [None]
  - ALOPECIA [None]
  - DRY SKIN [None]
  - HAIR TEXTURE ABNORMAL [None]
